FAERS Safety Report 25841175 (Version 1)
Quarter: 2025Q3

REPORT INFORMATION
  Report Type: Spontaneous
  Country: US (occurrence: None)
  Receive Date: 20250923
  Receipt Date: 20250923
  Transmission Date: 20251021
  Serious: Yes (Hospitalization, Disabling)
  Sender: FDA-CTU
  Company Number: None

PATIENT
  Age: 22 Year
  Sex: Male
  Weight: 58.5 kg

DRUGS (1)
  1. LEVAQUIN [Suspect]
     Active Substance: LEVOFLOXACIN
     Indication: Bacterial infection
     Dates: start: 20250507, end: 20250914

REACTIONS (9)
  - Neuropathy peripheral [None]
  - Vitreous floaters [None]
  - Visual impairment [None]
  - Chest pain [None]
  - Arthralgia [None]
  - Joint noise [None]
  - Back pain [None]
  - Depersonalisation/derealisation disorder [None]
  - Derealisation [None]

NARRATIVE: CASE EVENT DATE: 20250507
